FAERS Safety Report 10614605 (Version 1)
Quarter: 2014Q4

REPORT INFORMATION
  Report Type: Spontaneous
  Country: GB (occurrence: GB)
  Receive Date: 20141130
  Receipt Date: 20141130
  Transmission Date: 20150529
  Serious: Yes (Hospitalization)
  Sender: FDA-Public Use
  Company Number: PHHY2014GB152662

PATIENT
  Age: 71 Year
  Sex: Male
  Weight: 60.7 kg

DRUGS (3)
  1. METFORMIN [Concomitant]
     Active Substance: METFORMIN HYDROCHLORIDE
     Indication: TYPE 2 DIABETES MELLITUS
  2. OXALIPLATIN. [Suspect]
     Active Substance: OXALIPLATIN
     Indication: RECTAL CANCER METASTATIC
     Route: 042
     Dates: start: 20141024
  3. 5-FLUOROURACIL [Suspect]
     Active Substance: FLUOROURACIL
     Indication: RECTAL CANCER METASTATIC
     Dosage: 4500 MG, UNK
     Route: 042

REACTIONS (4)
  - Mucosal inflammation [Unknown]
  - Orthostatic hypotension [Unknown]
  - Blood glucose increased [Unknown]
  - Dizziness [Unknown]

NARRATIVE: CASE EVENT DATE: 20141024
